FAERS Safety Report 6849234-7 (Version None)
Quarter: 2010Q3

REPORT INFORMATION
  Report Type: 
  Country: None (occurrence: None)
  Receive Date: 20100716
  Receipt Date: 20070926
  Transmission Date: 20110219
  Serious: No
  Sender: FDA-Public Use
  Company Number: US-PFIZER INC-2007082011

PATIENT
  Sex: Female
  Weight: 53.6 kg

DRUGS (7)
  1. CHANTIX [Suspect]
     Indication: SMOKING CESSATION THERAPY
     Dates: start: 20070901
  2. LOVAZA [Concomitant]
  3. MULTI-VITAMINS [Concomitant]
  4. DARVOCET-N 100 [Concomitant]
  5. ALL OTHER THERAPEUTIC PRODUCTS [Concomitant]
  6. CALCIUM [Concomitant]
  7. CRESTOR [Concomitant]

REACTIONS (2)
  - INSOMNIA [None]
  - SLEEP DISORDER [None]
